FAERS Safety Report 10691087 (Version 1)
Quarter: 2015Q1

REPORT INFORMATION
  Report Type: Spontaneous
  Country: US (occurrence: None)
  Receive Date: 20150102
  Receipt Date: 20150102
  Transmission Date: 20150720
  Serious: Yes (Other)
  Sender: FDA-Public Use
  Company Number: 001848179A

PATIENT
  Age: 16 Year
  Sex: Male

DRUGS (3)
  1. PROACTIV PLUS COMPLEXION PERFECTING HYDRATOR [Suspect]
     Active Substance: SALICYLIC ACID
     Indication: ACNE
     Dosage: TWICE DAILY, DERMAL
     Dates: start: 20141126, end: 20141129
  2. PROACTIVPLUS SKIN SMOOTHING EXFOLIATOR [Suspect]
     Active Substance: BENZOYL PEROXIDE
     Indication: ACNE
     Dosage: TWICE DAILY, DERMAL
     Dates: start: 20141126, end: 20141129
  3. PROACTIV PLUS PORE TARGETING TREATMENT [Suspect]
     Active Substance: BENZOYL PEROXIDE
     Indication: ACNE
     Dosage: TWICE DAILY, DERMAL
     Dates: start: 20141126, end: 20141129

REACTIONS (1)
  - Anaphylactic reaction [None]

NARRATIVE: CASE EVENT DATE: 20141128
